FAERS Safety Report 5815096-X (Version None)
Quarter: 2008Q3

REPORT INFORMATION
  Report Type: 
  Country: None (occurrence: None)
  Receive Date: 20080718
  Receipt Date: 20080716
  Transmission Date: 20090109
  Serious: Yes (Hospitalization)
  Sender: FDA-Public Use
  Company Number: IS-MERCK-0807DNK00005

PATIENT
  Age: 79 Year
  Sex: Female

DRUGS (2)
  1. ZOCOR [Suspect]
     Indication: HYPERTENSION
     Route: 048
  2. DICLOFENAC POTASSIUM [Suspect]
     Indication: MUSCULOSKELETAL PAIN
     Route: 048

REACTIONS (8)
  - ABDOMINAL PAIN [None]
  - ASTHENIA [None]
  - DECREASED APPETITE [None]
  - DIARRHOEA [None]
  - FATIGUE [None]
  - MYASTHENIA GRAVIS [None]
  - NAUSEA [None]
  - RENAL FAILURE ACUTE [None]
